FAERS Safety Report 9106037 (Version 1)
Quarter: 2013Q1

REPORT INFORMATION
  Report Type: Spontaneous
  Country: US (occurrence: US)
  Receive Date: 20130220
  Receipt Date: 20130220
  Transmission Date: 20140127
  Serious: Yes (Hospitalization, Other)
  Sender: FDA-Public Use
  Company Number: US-PFIZER INC-2013061226

PATIENT
  Age: 59 Year
  Sex: Female

DRUGS (2)
  1. XANAX [Suspect]
     Dosage: UNK
     Dates: end: 201301
  2. VIIBRYD [Suspect]
     Indication: DEPRESSION
     Dosage: UNK
     Dates: start: 2012, end: 201301

REACTIONS (3)
  - Mania [Recovering/Resolving]
  - Intentional overdose [Recovered/Resolved]
  - Bipolar disorder [Not Recovered/Not Resolved]
